FAERS Safety Report 21168745 (Version 1)
Quarter: 2022Q3

REPORT INFORMATION
  Report Type: Other
  Country: None (occurrence: US)
  Receive Date: 20220803
  Receipt Date: 20220803
  Transmission Date: 20221026
  Serious: No
  Sender: FDA-Public Use
  Company Number: US-Tec Laboratories, Inc.-2131500

PATIENT
  Age: 11 Year
  Sex: Female

DRUGS (1)
  1. HOMEOPATHICS [Suspect]
     Active Substance: HOMEOPATHICS
     Route: 061
     Dates: start: 20220708, end: 20220708

REACTIONS (2)
  - Chemical poisoning [Recovered/Resolved]
  - Seizure [None]

NARRATIVE: CASE EVENT DATE: 20220708
